FAERS Safety Report 5612955-8 (Version None)
Quarter: 2008Q1

REPORT INFORMATION
  Report Type: 
  Country: None (occurrence: None)
  Receive Date: 20080204
  Receipt Date: 20080123
  Transmission Date: 20080703
  Serious: Yes (Other)
  Sender: FDA-Public Use
  Company Number: US-PFIZER INC-2007089523

PATIENT
  Age: 54 Year
  Sex: Male
  Weight: 96.6 kg

DRUGS (7)
  1. GEODON [Suspect]
     Indication: DEPRESSION
     Route: 048
  2. VERAPAMIL HYDROCHLORIDE [Suspect]
  3. WELLBUTRIN [Concomitant]
  4. TRAZODONE HCL [Concomitant]
  5. SENOKOT [Concomitant]
     Indication: CONSTIPATION
  6. FLAXSEED OIL [Concomitant]
  7. FISH OIL [Concomitant]

REACTIONS (8)
  - CONSTIPATION [None]
  - DEEP VEIN THROMBOSIS [None]
  - DEHYDRATION [None]
  - DEPRESSION [None]
  - MEAN CELL HAEMOGLOBIN CONCENTRATION INCREASED [None]
  - MEAN CELL VOLUME INCREASED [None]
  - PULMONARY EMBOLISM [None]
  - WEIGHT DECREASED [None]
